FAERS Safety Report 11837177 (Version 2)
Quarter: 2016Q1

REPORT INFORMATION
  Report Type: Spontaneous
  Country: US (occurrence: US)
  Receive Date: 20151215
  Receipt Date: 20160106
  Transmission Date: 20160525
  Serious: No
  Sender: FDA-Public Use
  Company Number: US-PFIZER INC-2015397180

PATIENT
  Age: 73 Year
  Sex: Female
  Weight: 175 kg

DRUGS (1)
  1. MEDROL [Suspect]
     Active Substance: METHYLPREDNISOLONE
     Indication: NERVE COMPRESSION
     Dosage: UNK

REACTIONS (1)
  - Palpitations [Unknown]
